FAERS Safety Report 7652593-9 (Version None)
Quarter: 2011Q3

REPORT INFORMATION
  Report Type: 
  Country: None (occurrence: None)
  Receive Date: 20110722
  Receipt Date: 20110505
  Transmission Date: 20111222
  Serious: Yes (Hospitalization)
  Sender: FDA-Public Use
  Company Number: UTC-006912

PATIENT
  Age: 51 Year
  Sex: Male

DRUGS (4)
  1. REMODULIN [Suspect]
     Indication: PULMONARY ARTERIAL HYPERTENSION
     Dosage: 92.16 UG/KG (0.064 UG/KG,1 IN 1 MIN),SUBCUTANEOUS
     Route: 058
     Dates: start: 20090501
  2. COUMAIDN (WARFARIN) [Concomitant]
  3. LETARIS (AMBRISENTAN) [Concomitant]
  4. ADCIRCA [Concomitant]

REACTIONS (5)
  - VOMITING [None]
  - DEHYDRATION [None]
  - INFUSION SITE INFECTION [None]
  - INFUSION SITE PAIN [None]
  - INFUSION SITE PRURITUS [None]
